FAERS Safety Report 18934869 (Version 1)
Quarter: 2021Q1

REPORT INFORMATION
  Report Type: Spontaneous
  Country: DE (occurrence: DE)
  Receive Date: 20210224
  Receipt Date: 20210224
  Transmission Date: 20210420
  Serious: Yes (Death, Other)
  Sender: FDA-Public Use
  Company Number: DE-PFIZER INC-2021178569

PATIENT

DRUGS (1)
  1. HEPARIN SODIUM. [Suspect]
     Active Substance: HEPARIN SODIUM
     Dosage: UNK

REACTIONS (8)
  - Pulmonary embolism [Fatal]
  - Thrombosis mesenteric vessel [Fatal]
  - Leriche syndrome [Fatal]
  - Crush syndrome [Fatal]
  - Embolism arterial [Fatal]
  - Heparin-induced thrombocytopenia [Fatal]
  - Acute kidney injury [Fatal]
  - Deep vein thrombosis [Fatal]
